FAERS Safety Report 5005682-1 (Version None)
Quarter: 2006Q2

REPORT INFORMATION
  Report Type: 
  Country: None (occurrence: None)
  Receive Date: 20060515
  Receipt Date: 20060504
  Transmission Date: 20061013
  Serious: Yes (Hospitalization)
  Sender: FDA-Public Use
  Company Number: HQWYE175504MAY06

PATIENT
  Age: 46 Year
  Sex: Male

DRUGS (7)
  1. ADVIL [Suspect]
     Dosage: 1600 MG DAILY
     Route: 048
     Dates: end: 20060320
  2. NAPROXEN SODIUM [Suspect]
     Dosage: 750 MG 1X PER 1 DAY
     Route: 048
     Dates: end: 20060320
  3. ACETAMINOPHEN [Suspect]
     Dosage: 4 G DAILY
     Dates: end: 20060320
  4. PHENOBARBITAL TAB [Suspect]
     Indication: POST-TRAUMATIC EPILEPSY
     Dosage: 100 MG 2X PER 1 DAY
  5. VALIUM [Concomitant]
  6. IMODIUM [Concomitant]
  7. LORMETAEPAM [Concomitant]

REACTIONS (5)
  - BONE PAIN [None]
  - DRUG ABUSER [None]
  - DRUG DEPENDENCE [None]
  - MENINGISM [None]
  - OVERDOSE [None]
